FAERS Safety Report 15194720 (Version 1)
Quarter: 2018Q3

REPORT INFORMATION
  Report Type: Spontaneous
  Country: BR (occurrence: BR)
  Receive Date: 20180725
  Receipt Date: 20180725
  Transmission Date: 20181010
  Serious: Yes (Hospitalization, Other)
  Sender: FDA-Public Use
  Company Number: BR-GLAXOSMITHKLINE-BR2018GSK129254

PATIENT
  Sex: Female
  Weight: 4.23 kg

DRUGS (2)
  1. FLIXOTIDE (CFC?FREE) [Suspect]
     Active Substance: FLUTICASONE PROPIONATE
     Indication: BRONCHIOLITIS
     Dosage: 50 MCG, 2 PUFF(S), TID
     Route: 055
  2. AEROLIN [Suspect]
     Active Substance: ALBUTEROL
     Indication: PRODUCT USED FOR UNKNOWN INDICATION
     Dosage: 2 DF(APPLICATION), QID

REACTIONS (4)
  - Drug administered to patient of inappropriate age [Unknown]
  - Drug prescribing error [Recovered/Resolved]
  - Product use in unapproved indication [Unknown]
  - Hospitalisation [Recovered/Resolved]
